FAERS Safety Report 6206309-3 (Version None)
Quarter: 2009Q2

REPORT INFORMATION
  Report Type: 
  Country: None (occurrence: None)
  Receive Date: 20090528
  Receipt Date: 20090520
  Transmission Date: 20091009
  Serious: Yes (Hospitalization)
  Sender: FDA-Public Use
  Company Number: FR-B.I. PHARMACEUTICALS,INC./RIDGEFIELD-2009-FF-00355FF

PATIENT
  Sex: Male

DRUGS (16)
  1. ATROVENT [Suspect]
     Indication: CHRONIC OBSTRUCTIVE PULMONARY DISEASE
     Dates: start: 20090330
  2. PREVISCAN [Concomitant]
     Route: 048
     Dates: start: 20060101
  3. TAVANIC [Concomitant]
     Indication: BRONCHITIS
     Dosage: 500MG
     Route: 048
     Dates: start: 20090327, end: 20090330
  4. TAZOCILLINE [Concomitant]
     Indication: BRONCHITIS
     Dosage: 4 G/500 MG 12 G (4 G, X 3 DAILY)
     Route: 042
     Dates: start: 20090403, end: 20090417
  5. AMIKLIN [Concomitant]
     Indication: BRONCHITIS
     Dosage: 900MG
     Route: 042
     Dates: start: 20090403, end: 20090408
  6. TIENAM [Concomitant]
     Indication: BRONCHITIS
     Dosage: 3G
     Dates: start: 20090429, end: 20090505
  7. SYMBICORT [Concomitant]
     Indication: CHRONIC OBSTRUCTIVE PULMONARY DISEASE
     Route: 055
     Dates: start: 20090330
  8. BRICANYL [Concomitant]
     Indication: CHRONIC OBSTRUCTIVE PULMONARY DISEASE
     Dates: start: 20090330
  9. LASIX [Concomitant]
     Indication: CARDIAC FAILURE
     Dates: start: 20090327, end: 20090401
  10. CORDARONE [Concomitant]
     Indication: VENTRICULAR TACHYCARDIA
     Dosage: 150 MG/3ML X 5 DAILY
     Dates: start: 20090327, end: 20090429
  11. CHRONADALATE [Concomitant]
     Indication: HYPERTENSION
     Route: 048
     Dates: end: 20090327
  12. AMLODIPINE BESYLATE [Concomitant]
     Indication: HYPERTENSION
     Route: 048
     Dates: start: 20090328, end: 20090331
  13. MODURETIC 5-50 [Concomitant]
  14. EPINITRIL [Concomitant]
     Route: 062
  15. TRIATEC [Concomitant]
  16. VENTOLIN [Concomitant]

REACTIONS (2)
  - AGRANULOCYTOSIS [None]
  - LYMPHOPENIA [None]
